FAERS Safety Report 8903464 (Version 1)
Quarter: 2012Q4

REPORT INFORMATION
  Report Type: 
  Country: US (occurrence: US)
  Receive Date: 20121112
  Receipt Date: 20121112
  Transmission Date: 20130627
  Serious: Yes (Other)
  Sender: FDA-Public Use
  Company Number: US-MPIJNJ-2012-07771

PATIENT
  Age: 57 Year
  Sex: Male
  Weight: 70 kg

DRUGS (2)
  1. VELCADE [Suspect]
     Indication: MANTLE CELL LYMPHOMA
     Dosage: 1.3 mg/m2, Cyclic
     Route: 040
     Dates: start: 20120807, end: 20121019
  2. VORINOSTAT [Suspect]
     Indication: MANTLE CELL LYMPHOMA
     Dosage: 400 mg, Cyclic
     Route: 048
     Dates: start: 20120807, end: 20121020

REACTIONS (1)
  - Dry eye [Unknown]
